FAERS Safety Report 10404598 (Version 1)
Quarter: 2014Q2

REPORT INFORMATION
  Report Type: Spontaneous
  Country: US (occurrence: None)
  Receive Date: 20140530
  Receipt Date: 20140530
  Transmission Date: 20141212
  Serious: Yes (Hospitalization)
  Sender: FDA-Public Use
  Company Number: PHEH2014US005937

PATIENT
  Age: 44 Year
  Sex: Female

DRUGS (1)
  1. AFINITOR (RAD) TABLET, 10MG [Suspect]
     Route: 048

REACTIONS (3)
  - Pneumonia [None]
  - Pyrexia [None]
  - Cough [None]
